FAERS Safety Report 6692181-4 (Version None)
Quarter: 2010Q2

REPORT INFORMATION
  Report Type: 
  Country: None (occurrence: None)
  Receive Date: 20100422
  Receipt Date: 20090615
  Transmission Date: 20101027
  Serious: No
  Sender: FDA-Public Use
  Company Number: US-ASTRAZENECA-2009UW15239

PATIENT
  Age: 78 Year
  Sex: Male

DRUGS (3)
  1. TOPROL-XL [Suspect]
     Route: 048
     Dates: start: 20040629
  2. NORVASC [Concomitant]
  3. LISINOPRIL [Concomitant]

REACTIONS (2)
  - MUSCLE SPASMS [None]
  - OEDEMA PERIPHERAL [None]
